FAERS Safety Report 7135470-1 (Version None)
Quarter: 2010Q4

REPORT INFORMATION
  Report Type: 
  Country: None (occurrence: None)
  Receive Date: 20101203
  Receipt Date: 20101124
  Transmission Date: 20110411
  Serious: Yes (Other)
  Sender: FDA-Public Use
  Company Number: PL-B.I. PHARMACEUTICALS,INC./RIDGEFIELD-2010-DE-06600GD

PATIENT
  Sex: Female

DRUGS (6)
  1. APTIVUS [Suspect]
     Indication: HIV INFECTION
     Dates: start: 20051201, end: 20060301
  2. VIREAD [Suspect]
     Indication: HIV INFECTION
  3. 3TC [Suspect]
     Indication: HIV INFECTION
  4. STOCRIN [Suspect]
     Indication: HIV INFECTION
     Dates: start: 20060301
  5. TELZIR [Suspect]
     Indication: HIV INFECTION
     Dates: start: 20060301
  6. RITONAVIR [Suspect]
     Indication: HIV INFECTION
     Dates: start: 20060301

REACTIONS (14)
  - BLINDNESS UNILATERAL [None]
  - CYTOMEGALOVIRUS CHORIORETINITIS [None]
  - DERMATITIS ALLERGIC [None]
  - DRUG INEFFECTIVE [None]
  - DRUG INTOLERANCE [None]
  - IMMUNE RECONSTITUTION SYNDROME [None]
  - INJECTION SITE NECROSIS [None]
  - NECROTISING RETINITIS [None]
  - PANCREATITIS ACUTE [None]
  - PATHOGEN RESISTANCE [None]
  - RETINAL DEGENERATION [None]
  - RETINAL HAEMORRHAGE [None]
  - SKIN TOXICITY [None]
  - VISUAL FIELD DEFECT [None]
